FAERS Safety Report 19057849 (Version 1)
Quarter: 2021Q1

REPORT INFORMATION
  Report Type: Spontaneous
  Country: US (occurrence: US)
  Receive Date: 20210324
  Receipt Date: 20210324
  Transmission Date: 20210420
  Serious: Yes (Other)
  Sender: FDA-Public Use
  Company Number: US-IBSA PHARMA-2021-IBS-00003

PATIENT
  Age: 59 Year
  Weight: 64.41 kg

DRUGS (3)
  1. FLECTOR [Suspect]
     Active Substance: DICLOFENAC EPOLAMINE
     Indication: INTERVERTEBRAL DISC DEGENERATION
     Dosage: 1 PATCH TO SKIN THREE TIMES A DAY
     Route: 062
  2. FLECTOR [Suspect]
     Active Substance: DICLOFENAC EPOLAMINE
     Dosage: 1 PATCH TO SKIN TO MOST PAINFUL AREA TWICE A DAY
     Route: 062
  3. FLECTOR [Suspect]
     Active Substance: DICLOFENAC EPOLAMINE
     Indication: PAIN
     Dosage: 3 PATCH
     Route: 062

REACTIONS (4)
  - Intentional product use issue [Unknown]
  - Diabetes mellitus [Not Recovered/Not Resolved]
  - Therapeutic product effect incomplete [Unknown]
  - Intentional overdose [Unknown]
